FAERS Safety Report 14794020 (Version 1)
Quarter: 2018Q2

REPORT INFORMATION
  Report Type: Spontaneous
  Country: US (occurrence: US)
  Receive Date: 20180423
  Receipt Date: 20180423
  Transmission Date: 20180711
  Serious: No
  Sender: FDA-Public Use
  Company Number: US-BAYER-2018-070608

PATIENT
  Age: 89 Year
  Sex: Female

DRUGS (2)
  1. MIRALAX [Suspect]
     Active Substance: POLYETHYLENE GLYCOL 3350
     Indication: GASTROINTESTINAL DISORDER
     Dosage: UNK (1/2-1 DOSE DAILY DOSE)
     Route: 048
  2. MIRALAX [Suspect]
     Active Substance: POLYETHYLENE GLYCOL 3350
     Indication: PROPHYLAXIS

REACTIONS (7)
  - Poor quality drug administered [None]
  - Incorrect dosage administered [Unknown]
  - Bowel movement irregularity [Unknown]
  - Product use issue [Unknown]
  - Underdose [Unknown]
  - Product use in unapproved indication [Unknown]
  - Product quality issue [None]
